FAERS Safety Report 4879559-6 (Version None)
Quarter: 2006Q1

REPORT INFORMATION
  Report Type: 
  Country: None (occurrence: None)
  Receive Date: 20060113
  Receipt Date: 20051123
  Transmission Date: 20060701
  Serious: Yes (Other)
  Sender: FDA-Public Use
  Company Number: 2006UW00531

PATIENT
  Age: 78 Year
  Sex: Female
  Weight: 72.7 kg

DRUGS (2)
  1. PRILOSEC OTC [Suspect]
     Indication: DYSPEPSIA
     Route: 048
     Dates: start: 20051122, end: 20051123
  2. OXYGEN [Concomitant]
     Indication: EMPHYSEMA

REACTIONS (2)
  - DYSPNOEA [None]
  - HYPERSENSITIVITY [None]
